FAERS Safety Report 26059918 (Version 1)
Quarter: 2025Q4

REPORT INFORMATION
  Report Type: Spontaneous
  Country: US (occurrence: US)
  Receive Date: 20251118
  Receipt Date: 20251118
  Transmission Date: 20260117
  Serious: No
  Sender: MISSION PHARMACAL COMPANY
  Company Number: US-Mission Pharmacal Company-2188777

PATIENT

DRUGS (2)
  1. THIOLA EC [Suspect]
     Active Substance: TIOPRONIN
     Indication: Nephrolithiasis
     Dates: start: 20150605
  2. THIOLA EC [Suspect]
     Active Substance: TIOPRONIN
     Indication: Cystinuria

REACTIONS (1)
  - Drug ineffective [Unknown]
